FAERS Safety Report 18634183 (Version 1)
Quarter: 2020Q4

REPORT INFORMATION
  Report Type: Spontaneous
  Country: US (occurrence: US)
  Receive Date: 20201217
  Receipt Date: 20201217
  Transmission Date: 20210114
  Serious: Yes (Other)
  Sender: FDA-Public Use
  Company Number: None

PATIENT
  Sex: Female

DRUGS (1)
  1. OCTREOTIDE 100MCG/ML SDV 1ML [Suspect]
     Active Substance: OCTREOTIDE
     Indication: BREAST CANCER FEMALE
     Dosage: OTHER FREQUENCY:Q8HR ;?
     Route: 058

REACTIONS (2)
  - Neoplasm malignant [None]
  - Metastatic neoplasm [None]
